FAERS Safety Report 17509251 (Version 1)
Quarter: 2020Q1

REPORT INFORMATION
  Report Type: Spontaneous
  Country: AU (occurrence: AU)
  Receive Date: 20200306
  Receipt Date: 20200306
  Transmission Date: 20200409
  Serious: Yes (Hospitalization, Other)
  Sender: FDA-Public Use
  Company Number: AU-GE HEALTHCARE LIFE SCIENCES-2020CSU000942

PATIENT

DRUGS (8)
  1. OMNIPAQUE [Suspect]
     Active Substance: IOHEXOL
     Indication: COMPUTERISED TOMOGRAM ABDOMEN
  2. SALBUTAMOL [Concomitant]
     Active Substance: ALBUTEROL
     Indication: ASTHMA
     Dosage: UNK
  3. OMNIPAQUE [Suspect]
     Active Substance: IOHEXOL
     Indication: COMPUTERISED TOMOGRAM PELVIS
  4. OMNIPAQUE [Suspect]
     Active Substance: IOHEXOL
     Indication: UPPER RESPIRATORY TRACT INFECTION
  5. OMNIPAQUE [Suspect]
     Active Substance: IOHEXOL
     Indication: LETHARGY
  6. OMNIPAQUE [Suspect]
     Active Substance: IOHEXOL
     Indication: WEIGHT DECREASED
  7. OMNIPAQUE [Suspect]
     Active Substance: IOHEXOL
     Indication: COMPUTERISED TOMOGRAM THORAX
     Dosage: 70 ML, SINGLE
     Route: 042
     Dates: start: 20200225, end: 20200225
  8. OMNIPAQUE [Suspect]
     Active Substance: IOHEXOL
     Indication: DECREASED APPETITE

REACTIONS (5)
  - Dyspnoea [Recovered/Resolved]
  - Dysphagia [Recovered/Resolved]
  - Stridor [Recovered/Resolved]
  - Orbital oedema [Recovered/Resolved]
  - Angioedema [Recovered/Resolved]

NARRATIVE: CASE EVENT DATE: 20200225
